FAERS Safety Report 8021255-0 (Version None)
Quarter: 2011Q4

REPORT INFORMATION
  Report Type: 
  Country: None (occurrence: None)
  Receive Date: 20111230
  Receipt Date: 20111230
  Transmission Date: 20120403
  Serious: No
  Sender: FDA-Public Use
  Company Number: None

PATIENT
  Age: 55 Year
  Sex: Female
  Weight: 47.6 kg

DRUGS (2)
  1. BARIUM SULFATE [Suspect]
     Indication: OESOPHAGOSCOPY
     Dosage: 25 ML ONCE PO
     Route: 048
     Dates: start: 20110621, end: 20110621
  2. BARIUM SULFATE [Suspect]
     Indication: OESOPHAGOSCOPY
     Dosage: 650 MG ONCE PO
     Route: 048
     Dates: start: 20110621, end: 20110621

REACTIONS (1)
  - CONVULSION [None]
